FAERS Safety Report 8811235 (Version 1)
Quarter: 2012Q4

REPORT INFORMATION
  Report Type: Spontaneous
  Country: US (occurrence: None)
  Receive Date: 20120924
  Receipt Date: 20120924
  Transmission Date: 20130627
  Serious: Yes (Hospitalization)
  Sender: FDA-Public Use
  Company Number: None

PATIENT
  Age: 65 Year
  Sex: Male
  Weight: 106.4 kg

DRUGS (2)
  1. SPIRONOLACTONE [Suspect]
     Indication: DIURETIC THERAPY
     Dosage: MG EVERY DAY PO
     Route: 048
     Dates: start: 20120410
  2. DICLOFENAC [Suspect]
     Route: 048
     Dates: start: 20120625, end: 20120702

REACTIONS (2)
  - Hyponatraemia [None]
  - Inappropriate antidiuretic hormone secretion [None]
